FAERS Safety Report 9100158 (Version 2)
Quarter: 2013Q2

REPORT INFORMATION
  Report Type: Report from Study
  Country: US (occurrence: US)
  Receive Date: 20130212
  Receipt Date: 20130401
  Transmission Date: 20140414
  Serious: Yes (Other)
  Sender: FDA-Public Use
  Company Number: US-VERTEX PHARMACEUTICALS INC.-2013-001888

PATIENT
  Age: 59 Year
  Sex: Male
  Weight: 73 kg

DRUGS (14)
  1. VX-950 (TELAPREVIR) [Suspect]
     Indication: HEPATITIS C
     Dosage: 750 MG, TID
     Route: 048
  2. RIBAVIRIN [Suspect]
     Indication: HEPATITIS C
     Dosage: 200 MG, UNK
  3. PEGASYS [Suspect]
     Indication: HEPATITIS C
  4. FLOMAX [Concomitant]
     Dosage: 0.4 MG, UNK
  5. XANAX [Concomitant]
     Dosage: 0.5 MG, UNK
  6. VICODIN [Concomitant]
     Dosage: 5-500MG
  7. DIFLUCAN [Concomitant]
     Dosage: 100 MG, UNK
  8. CELEXA [Concomitant]
     Dosage: 10 MG, UNK
  9. METHOTREXATE [Concomitant]
     Dosage: 2.5 MG, UNK
  10. IMODIUM A-D [Concomitant]
     Dosage: 2 MG, UNK
  11. BENADRYL [Concomitant]
     Dosage: 25 MG, UNK
  12. KLOR-CON [Concomitant]
     Dosage: 10 DF, UNK
  13. ONDANSETRON [Concomitant]
     Dosage: 4 MG, UNK
  14. OXYBUTYNIN [Concomitant]
     Dosage: 5 MG, UNK

REACTIONS (10)
  - Pulmonary oedema [Unknown]
  - Haemoptysis [Unknown]
  - Productive cough [Unknown]
  - Dyspnoea exertional [Unknown]
  - Pyrexia [Unknown]
  - Weight decreased [Unknown]
  - Haematemesis [Unknown]
  - Fatigue [Unknown]
  - Diarrhoea [Unknown]
  - Vomiting [Unknown]
